APPROVED DRUG PRODUCT: CEFAZOLIN SODIUM
Active Ingredient: CEFAZOLIN SODIUM
Strength: EQ 500MG BASE/VIAL
Dosage Form/Route: INJECTABLE;INJECTION
Application: A065395 | Product #001
Applicant: AUROBINDO PHARMA LTD
Approved: Aug 8, 2008 | RLD: No | RS: No | Type: DISCN